FAERS Safety Report 6199083-0 (Version None)
Quarter: 2009Q2

REPORT INFORMATION
  Report Type: 
  Country: None (occurrence: None)
  Receive Date: 20090521
  Receipt Date: 20090521
  Transmission Date: 20091009
  Serious: No
  Sender: FDA-Public Use
  Company Number: None

PATIENT
  Age: 30 Year
  Sex: Female
  Weight: 114.3065 kg

DRUGS (1)
  1. ALLI [Suspect]
     Indication: OVERWEIGHT
     Dosage: DAILY ORAL
     Route: 048
     Dates: start: 20090315, end: 20090409

REACTIONS (2)
  - DISEASE RECURRENCE [None]
  - THROMBOTIC THROMBOCYTOPENIC PURPURA [None]
